FAERS Safety Report 22898338 (Version 7)
Quarter: 2024Q2

REPORT INFORMATION
  Report Type: Report from Study
  Country: JP (occurrence: JP)
  Receive Date: 20230903
  Receipt Date: 20240424
  Transmission Date: 20240715
  Serious: Yes (Hospitalization)
  Sender: FDA-Public Use
  Company Number: JP-SA-2023SA104311

PATIENT
  Age: 80 Year
  Sex: Male
  Weight: 51 kg

DRUGS (12)
  1. ISATUXIMAB [Suspect]
     Active Substance: ISATUXIMAB
     Indication: Plasma cell myeloma
     Dosage: 1000 MG, QOW
     Route: 041
     Dates: start: 20230310, end: 20230323
  2. ISATUXIMAB [Suspect]
     Active Substance: ISATUXIMAB
     Dosage: 1000 MG, QOW
     Route: 041
     Dates: start: 20230424, end: 20230508
  3. ISATUXIMAB [Suspect]
     Active Substance: ISATUXIMAB
     Dosage: 1000 MG, QOW
     Route: 041
     Dates: start: 20230522, end: 20230605
  4. ISATUXIMAB [Suspect]
     Active Substance: ISATUXIMAB
     Dosage: 1000 MG, QOW
     Route: 041
     Dates: start: 20230619, end: 20230703
  5. ISATUXIMAB [Suspect]
     Active Substance: ISATUXIMAB
     Dosage: 1000 MG, QOW
     Route: 041
     Dates: start: 20230724, end: 20230807
  6. ISATUXIMAB [Suspect]
     Active Substance: ISATUXIMAB
     Dosage: 1000 MG, QOW
     Route: 041
     Dates: start: 20230911, end: 20230925
  7. ISATUXIMAB [Suspect]
     Active Substance: ISATUXIMAB
     Dosage: 1000 MG, QOW
     Route: 041
     Dates: start: 20231012, end: 20231026
  8. ISATUXIMAB [Suspect]
     Active Substance: ISATUXIMAB
     Dosage: 1000 MG, QOW
     Route: 041
     Dates: start: 20231109, end: 20231127
  9. ISATUXIMAB [Suspect]
     Active Substance: ISATUXIMAB
     Dosage: 1000 MG, QOW
     Route: 041
     Dates: start: 20231214, end: 20231228
  10. ISATUXIMAB [Suspect]
     Active Substance: ISATUXIMAB
     Dosage: 1000 MG, QOW
     Route: 041
     Dates: start: 20240111, end: 20240125
  11. ISATUXIMAB [Suspect]
     Active Substance: ISATUXIMAB
     Dosage: 1000 MG, QOW
     Route: 041
     Dates: start: 20240208, end: 20240222
  12. KENKETU GLOVENIN-I [Concomitant]
     Active Substance: HUMAN IMMUNOGLOBULIN G
     Indication: Hypogammaglobulinaemia
     Dosage: UNK
     Route: 065
     Dates: start: 20230309

REACTIONS (3)
  - Pyrexia [Recovered/Resolved]
  - Dehydration [Recovered/Resolved]
  - Ileus paralytic [Recovered/Resolved]

NARRATIVE: CASE EVENT DATE: 20230331
